FAERS Safety Report 18257766 (Version 1)
Quarter: 2020Q3

REPORT INFORMATION
  Report Type: Spontaneous
  Country: US (occurrence: US)
  Receive Date: 20200911
  Receipt Date: 20200911
  Transmission Date: 20201103
  Serious: No
  Sender: FDA-Public Use
  Company Number: US-SA-2020SA247633

PATIENT

DRUGS (4)
  1. DUPIXENT [Suspect]
     Active Substance: DUPILUMAB
     Indication: DERMATITIS ATOPIC
     Dosage: 600 MG, QOW, STARTING ON DAY 15
     Route: 058
  2. MUPIROCIN. [Concomitant]
     Active Substance: MUPIROCIN
  3. PREDNISONE. [Concomitant]
     Active Substance: PREDNISONE
  4. PROTOPIC [Concomitant]
     Active Substance: TACROLIMUS

REACTIONS (2)
  - Product use issue [Unknown]
  - Rash [Not Recovered/Not Resolved]

NARRATIVE: CASE EVENT DATE: 20200820
